FAERS Safety Report 4804481-0 (Version None)
Quarter: 2005Q4

REPORT INFORMATION
  Report Type: 
  Country: None (occurrence: None)
  Receive Date: 20051017
  Receipt Date: 20051004
  Transmission Date: 20060501
  Serious: Yes (Other)
  Sender: FDA-Public Use
  Company Number: 2005132955

PATIENT
  Age: 83 Year
  Sex: Female
  Weight: 50 kg

DRUGS (4)
  1. LIPITOR [Suspect]
     Indication: HYPERCHOLESTEROLAEMIA
     Dosage: 10 MG (1 IN 1 D), ORAL
     Route: 048
     Dates: start: 20050728, end: 20050913
  2. FAMOTIDINE [Concomitant]
  3. SERMION (NICERGOLINE) [Concomitant]
  4. ZOLPIDEM TARTRATE [Concomitant]

REACTIONS (2)
  - RENAL FAILURE CHRONIC [None]
  - RHABDOMYOLYSIS [None]
